FAERS Safety Report 9964011 (Version 1)
Quarter: 2014Q1

REPORT INFORMATION
  Report Type: Spontaneous
  Country: US (occurrence: US)
  Receive Date: 20140305
  Receipt Date: 20140305
  Transmission Date: 20141002
  Serious: Yes (Other)
  Sender: FDA-Public Use
  Company Number: US-UCBSA-113588

PATIENT
  Sex: Female

DRUGS (1)
  1. CIMZIA [Suspect]
     Indication: RHEUMATOID ARTHRITIS
     Dosage: SELF INJECTION
     Dates: end: 201309

REACTIONS (3)
  - Rheumatoid nodule [Unknown]
  - Precancerous cells present [Unknown]
  - Drug ineffective [Recovered/Resolved]
